FAERS Safety Report 24102361 (Version 1)
Quarter: 2024Q3

REPORT INFORMATION
  Report Type: Report from Study
  Country: US (occurrence: US)
  Receive Date: 20240717
  Receipt Date: 20240717
  Transmission Date: 20241017
  Serious: Yes (Hospitalization, Other)
  Sender: ABBVIE
  Company Number: US-ABBVIE-5840595

PATIENT
  Sex: Male

DRUGS (1)
  1. HUMIRA [Suspect]
     Active Substance: ADALIMUMAB
     Indication: Rheumatoid arthritis
     Route: 058
     Dates: start: 20230624

REACTIONS (7)
  - Heat exhaustion [Recovering/Resolving]
  - Peripheral swelling [Not Recovered/Not Resolved]
  - Dehydration [Recovering/Resolving]
  - Urinary tract infection [Unknown]
  - Rhabdomyolysis [Unknown]
  - Hypoaesthesia [Not Recovered/Not Resolved]
  - Type 2 diabetes mellitus [Unknown]
